FAERS Safety Report 19747671 (Version 2)
Quarter: 2021Q3

REPORT INFORMATION
  Report Type: Spontaneous
  Country: US (occurrence: US)
  Receive Date: 20210825
  Receipt Date: 20210830
  Transmission Date: 20211014
  Serious: Yes (Other)
  Sender: FDA-Public Use
  Company Number: US-ROCHE-2896732

PATIENT
  Age: 54 Year
  Sex: Male
  Weight: 103.1 kg

DRUGS (1)
  1. ACTEMRA [Suspect]
     Active Substance: TOCILIZUMAB
     Indication: COVID-19
     Route: 065
     Dates: start: 20210803, end: 20210803

REACTIONS (3)
  - Off label use [Unknown]
  - Staphylococcal bacteraemia [Unknown]
  - Pneumonia staphylococcal [Unknown]
